FAERS Safety Report 6197374-0 (Version None)
Quarter: 2009Q2

REPORT INFORMATION
  Report Type: 
  Country: None (occurrence: None)
  Receive Date: 20090521
  Receipt Date: 20090511
  Transmission Date: 20091009
  Serious: No
  Sender: FDA-Public Use
  Company Number: US-B.I. PHARMACEUTICALS,INC./RIDGEFIELD-2009-BP-05196BP

PATIENT
  Sex: Female

DRUGS (11)
  1. MIRAPEX [Suspect]
     Indication: RESTLESS LEGS SYNDROME
  2. MIRAPEX [Suspect]
     Indication: MUSCLE SPASMS
  3. DARVOCET-N 100 [Concomitant]
     Indication: RESTLESS LEGS SYNDROME
  4. REQUIP [Concomitant]
     Indication: RESTLESS LEGS SYNDROME
  5. PROPAFENONE HCL [Concomitant]
     Dosage: 450MG
  6. SIMVASTATIN [Concomitant]
  7. PLAVIX [Concomitant]
  8. ASPIRIN [Concomitant]
  9. PEPCID [Concomitant]
  10. HYDROXYG [Concomitant]
  11. ROPINIROLE HYDROCHLORIDE [Concomitant]
     Indication: RESTLESS LEGS SYNDROME

REACTIONS (1)
  - DRUG INEFFECTIVE [None]
